FAERS Safety Report 5919132-1 (Version None)
Quarter: 2008Q4

REPORT INFORMATION
  Report Type: 
  Country: None (occurrence: None)
  Receive Date: 20081015
  Receipt Date: 20081007
  Transmission Date: 20090506
  Serious: Yes (Other)
  Sender: FDA-Public Use
  Company Number: US-JNJFOC-20081002229

PATIENT
  Sex: Female
  Weight: 20.87 kg

DRUGS (2)
  1. CONCERTA [Suspect]
     Route: 048
  2. CONCERTA [Suspect]
     Indication: ATTENTION DEFICIT/HYPERACTIVITY DISORDER
     Route: 048

REACTIONS (6)
  - ATTENTION DEFICIT/HYPERACTIVITY DISORDER [None]
  - CHEST PAIN [None]
  - CONDITION AGGRAVATED [None]
  - GROWTH RETARDATION [None]
  - RESPIRATORY DISORDER [None]
  - WEIGHT DECREASED [None]
